FAERS Safety Report 5759354-6 (Version None)
Quarter: 2008Q2

REPORT INFORMATION
  Report Type: 
  Country: None (occurrence: None)
  Receive Date: 20080507
  Receipt Date: 20071203
  Transmission Date: 20081010
  Serious: Yes (Hospitalization)
  Sender: FDA-Public Use
  Company Number: 230864J07USA

PATIENT
  Age: 61 Year
  Sex: Female

DRUGS (3)
  1. REBIF [Suspect]
     Indication: MULTIPLE SCLEROSIS
     Dosage: 44 MCG, 3 IN 1 WEEKS, SUBCUTANEOUS
     Route: 058
     Dates: start: 20031020, end: 20071226
  2. STEROID (CORTICOSTEROID NOS) [Concomitant]
  3. FLU SHOT (INFLUENZA VIRUS VACCINE POLYVALENT) [Concomitant]

REACTIONS (7)
  - COLITIS [None]
  - DIARRHOEA [None]
  - GAIT DISTURBANCE [None]
  - INFLUENZA [None]
  - MULTIPLE SCLEROSIS RELAPSE [None]
  - NAUSEA [None]
  - VISUAL DISTURBANCE [None]
